FAERS Safety Report 16617213 (Version 1)
Quarter: 2019Q3

REPORT INFORMATION
  Report Type: Spontaneous
  Country: FR (occurrence: FR)
  Receive Date: 20190723
  Receipt Date: 20190723
  Transmission Date: 20191004
  Serious: Yes (Hospitalization, Other)
  Sender: FDA-Public Use
  Company Number: FR-MYLANLABS-2019M1068197

PATIENT
  Age: 83 Year
  Sex: Male
  Weight: 94 kg

DRUGS (2)
  1. TERCIAN                            /00759302/ [Suspect]
     Active Substance: CYAMEMAZINE
     Indication: PRODUCT USED FOR UNKNOWN INDICATION
     Dosage: 600 MILLIGRAM, TOTAL
     Route: 048
     Dates: start: 20180905, end: 20180905
  2. TRAMADOL. [Suspect]
     Active Substance: TRAMADOL
     Indication: PAIN
     Dosage: UNK
     Route: 048
     Dates: end: 20180905

REACTIONS (2)
  - Coma [Recovered/Resolved]
  - Accidental poisoning [Unknown]

NARRATIVE: CASE EVENT DATE: 20180905
